FAERS Safety Report 19094329 (Version 1)
Quarter: 2021Q2

REPORT INFORMATION
  Report Type: Other
  Country: FI (occurrence: FI)
  Receive Date: 20210406
  Receipt Date: 20210406
  Transmission Date: 20210717
  Serious: Yes (Other)
  Sender: FDA-Public Use
  Company Number: FI-CELLTRION INC.-2021FI004192

PATIENT

DRUGS (7)
  1. INFLIXIMAB (UNKNOWN) [Suspect]
     Active Substance: INFLIXIMAB
     Indication: OLIGOARTHRITIS
     Dosage: UNK
     Route: 042
     Dates: start: 201906, end: 20200403
  2. THYROXIN [Concomitant]
     Active Substance: LEVOTHYROXINE
     Route: 048
  3. IMUREL [Concomitant]
     Active Substance: AZATHIOPRINE SODIUM
     Dosage: 150,MG,DAILY
     Route: 048
  4. CIMZIA [Suspect]
     Active Substance: CERTOLIZUMAB PEGOL
     Indication: OLIGOARTHRITIS
     Dosage: UNK
     Route: 058
     Dates: start: 20200605, end: 202008
  5. PREDNISOLON [Concomitant]
     Active Substance: PREDNISOLONE
     Dosage: 5,MG,DAILY
     Route: 048
  6. FOLIC ACID. [Concomitant]
     Active Substance: FOLIC ACID
     Dosage: 5,MG,WEEKLY
     Route: 048
  7. OXIKLORIN [Concomitant]
     Active Substance: HYDROXYCHLOROQUINE SULFATE
     Dosage: 300,MG,DAILY
     Route: 048

REACTIONS (4)
  - Abortion [Unknown]
  - Maternal exposure during pregnancy [Unknown]
  - Off label use [Unknown]
  - Abortion induced [Unknown]

NARRATIVE: CASE EVENT DATE: 2020
